FAERS Safety Report 13509914 (Version 1)
Quarter: 2017Q2

REPORT INFORMATION
  Report Type: Spontaneous
  Country: US (occurrence: US)
  Receive Date: 20170503
  Receipt Date: 20170503
  Transmission Date: 20170830
  Serious: No
  Sender: FDA-Public Use
  Company Number: US-SA-2017SA051819

PATIENT
  Age: 58 Year
  Sex: Female

DRUGS (9)
  1. PRALUENT [Suspect]
     Active Substance: ALIROCUMAB
     Dosage: STRENGTH 150 MG
     Route: 065
  2. CRESTOR [Concomitant]
     Active Substance: ROSUVASTATIN CALCIUM
  3. PRALUENT [Suspect]
     Active Substance: ALIROCUMAB
     Dosage: STRENGTH 75 MG
     Route: 065
  4. ALIROCUMAB PREFILLED PEN [Concomitant]
     Active Substance: ALIROCUMAB
  5. PRALUENT [Suspect]
     Active Substance: ALIROCUMAB
     Dosage: STRENGTH 75 MG
     Route: 065
  6. ATENOLOL. [Concomitant]
     Active Substance: ATENOLOL
  7. ALIROCUMAB PREFILLED PEN [Concomitant]
     Active Substance: ALIROCUMAB
  8. ALIROCUMAB PREFILLED PEN [Concomitant]
     Active Substance: ALIROCUMAB
  9. ASPIRIN. [Concomitant]
     Active Substance: ASPIRIN

REACTIONS (2)
  - Musculoskeletal pain [Unknown]
  - Pruritus [Unknown]
